FAERS Safety Report 19113023 (Version 1)
Quarter: 2021Q2

REPORT INFORMATION
  Report Type: Spontaneous
  Country: US (occurrence: US)
  Receive Date: 20210409
  Receipt Date: 20210409
  Transmission Date: 20210717
  Serious: Yes (Hospitalization)
  Sender: FDA-Public Use
  Company Number: None

PATIENT
  Age: 50 Year
  Sex: Female
  Weight: 85 kg

DRUGS (2)
  1. CASIRIVIMAB AND IMDEVIMAB [Suspect]
     Active Substance: CASIRIVIMAB\IMDEVIMAB
     Indication: COVID-19
     Dates: start: 20210408, end: 20210408
  2. CASIRIVIMA/IMDEVIMAB [Concomitant]
     Dates: start: 20210408, end: 20210408

REACTIONS (6)
  - Pruritus [None]
  - Wheezing [None]
  - Oxygen saturation decreased [None]
  - Vomiting [None]
  - Dyspnoea [None]
  - Urticaria [None]

NARRATIVE: CASE EVENT DATE: 20210408
